FAERS Safety Report 6927195-X (Version None)
Quarter: 2010Q3

REPORT INFORMATION
  Report Type: 
  Country: None (occurrence: None)
  Receive Date: 20100816
  Receipt Date: 20100810
  Transmission Date: 20110219
  Serious: Yes (Death, Hospitalization, Other)
  Sender: FDA-Public Use
  Company Number: US-ELI_LILLY_AND_COMPANY-US201006002601

PATIENT
  Sex: Female
  Weight: 81.179 kg

DRUGS (3)
  1. ALIMTA [Suspect]
     Indication: OVARIAN CANCER METASTATIC
     Dosage: 700 MG, OTHER
     Dates: start: 20100423, end: 20100423
  2. FOLIC ACID [Concomitant]
  3. VITAMIN B-12 [Concomitant]

REACTIONS (2)
  - MALIGNANT NEOPLASM PROGRESSION [None]
  - OFF LABEL USE [None]
